FAERS Safety Report 20086605 (Version 3)
Quarter: 2021Q4

REPORT INFORMATION
  Report Type: Spontaneous
  Country: US (occurrence: US)
  Receive Date: 20211118
  Receipt Date: 20211229
  Transmission Date: 20220303
  Serious: Yes (Death, Hospitalization, Other)
  Sender: FDA-Public Use
  Company Number: US-INDIVIOR EUROPE LIMITED-INDV-131904-2021

PATIENT

DRUGS (2)
  1. SUBOXONE [Suspect]
     Active Substance: BUPRENORPHINE HYDROCHLORIDE\NALOXONE HYDROCHLORIDE
     Indication: Product used for unknown indication
     Dosage: 8-2 MG, QD
     Route: 042
     Dates: end: 20201127
  2. SUBOXONE [Suspect]
     Active Substance: BUPRENORPHINE HYDROCHLORIDE\NALOXONE HYDROCHLORIDE
     Dosage: UNK
     Route: 048

REACTIONS (9)
  - Cerebrovascular accident [Fatal]
  - Brain herniation [Fatal]
  - Pulseless electrical activity [Fatal]
  - Endocarditis candida [Unknown]
  - Candida osteomyelitis [Unknown]
  - Glomerulonephritis acute [Unknown]
  - Antiphospholipid syndrome [Unknown]
  - Skin ulcer [Unknown]
  - Intentional product use issue [Unknown]
